FAERS Safety Report 16695050 (Version 5)
Quarter: 2020Q4

REPORT INFORMATION
  Report Type: Report from Study
  Country: None (occurrence: NL)
  Receive Date: 20190812
  Receipt Date: 20201002
  Transmission Date: 20210113
  Serious: Yes (Hospitalization)
  Sender: FDA-Public Use
  Company Number: NL-ABBVIE-19S-114-2819328-00

PATIENT
  Age: 54 Year
  Sex: Female

DRUGS (7)
  1. DUODOPA [Suspect]
     Active Substance: CARBIDOPA\LEVODOPA
     Dosage: MORNING DOSE 6.7 CONTINUOUS DOSE 3.6 EXTRA DOSE 2.5 NIGHT DOSE 2.5.
     Route: 050
  2. DOMPERIDONE [Concomitant]
     Active Substance: DOMPERIDONE
     Indication: PRODUCT USED FOR UNKNOWN INDICATION
  3. DUODOPA [Suspect]
     Active Substance: CARBIDOPA\LEVODOPA
     Indication: PARKINSON^S DISEASE
     Dosage: MORNING DOSE 6.6
     Route: 050
     Dates: start: 20160711
  4. DUODOPA [Suspect]
     Active Substance: CARBIDOPA\LEVODOPA
     Dosage: DOSAGE: MD DECREASED FROM 5.1 TO 4.1
     Route: 050
  5. ARTANE [Concomitant]
     Active Substance: TRIHEXYPHENIDYL HYDROCHLORIDE
     Indication: PRODUCT USED FOR UNKNOWN INDICATION
  6. DUODOPA [Suspect]
     Active Substance: CARBIDOPA\LEVODOPA
     Dosage: MD: 3.4ML, CD: 3.7ML/H, ED: 3.0ML, END: 2.5 ML, CND: 2.7ML/H
     Route: 050
  7. DUODOPA [Suspect]
     Active Substance: CARBIDOPA\LEVODOPA
     Dosage: MD: 3.7ML, CD: 3.7ML/H, ED: 3.0ML, END: 2.5 ML, CND: 2.7ML/H
     Route: 050

REACTIONS (20)
  - Tension [Unknown]
  - Anxiety [Unknown]
  - Gait disturbance [Recovered/Resolved]
  - Dyskinesia [Not Recovered/Not Resolved]
  - Impaired healing [Not Recovered/Not Resolved]
  - Restlessness [Unknown]
  - Emotional disorder [Unknown]
  - Hyperkinesia [Recovering/Resolving]
  - Medical device pain [Unknown]
  - Mobility decreased [Unknown]
  - Abnormal dreams [Unknown]
  - Initial insomnia [Unknown]
  - Erythema [Unknown]
  - Muscle rigidity [Unknown]
  - Emotional distress [Unknown]
  - Stoma site infection [Not Recovered/Not Resolved]
  - Skin irritation [Unknown]
  - On and off phenomenon [Unknown]
  - Unevaluable event [Not Recovered/Not Resolved]
  - Stoma site erythema [Unknown]

NARRATIVE: CASE EVENT DATE: 20190802
